FAERS Safety Report 4785069-7 (Version None)
Quarter: 2005Q3

REPORT INFORMATION
  Report Type: 
  Country: None (occurrence: None)
  Receive Date: 20050930
  Receipt Date: 20050921
  Transmission Date: 20060218
  Serious: Yes (Hospitalization)
  Sender: FDA-Public Use
  Company Number: GR-ABBOTT-05P-066-0311698-00

PATIENT
  Age: 75 Year
  Sex: Female

DRUGS (11)
  1. TARKA [Suspect]
     Indication: HYPERTENSION
     Dosage: 180 + 2 MG
     Route: 048
     Dates: start: 20050912, end: 20050915
  2. APPROVEL [Concomitant]
     Indication: HYPERTENSION
     Route: 048
  3. ATENOLOL [Concomitant]
     Indication: HYPERTENSION
     Route: 048
     Dates: end: 20050909
  4. ATENOLOL [Concomitant]
     Dates: start: 20050916
  5. INDAPAMIDE [Concomitant]
     Indication: HYPERTENSION
     Route: 048
     Dates: start: 20050915, end: 20050920
  6. HEPARIN-FRACTION, SODIUM SALT [Concomitant]
     Indication: BRADYARRHYTHMIA
     Route: 058
     Dates: start: 20050915, end: 20050920
  7. ACTRAPID [Concomitant]
     Indication: DIABETES MELLITUS
     Route: 058
     Dates: end: 20050915
  8. MONOTARD [Concomitant]
     Indication: DIABETES MELLITUS
     Route: 058
     Dates: end: 20050915
  9. NATEGLINIDE [Concomitant]
     Indication: DIABETES MELLITUS
     Route: 048
     Dates: start: 20050916
  10. GLUCOPHAGE [Concomitant]
     Indication: DIABETES MELLITUS
     Route: 048
     Dates: start: 20050916
  11. INSULIN GLARGINE [Concomitant]
     Indication: DIABETES MELLITUS
     Route: 058
     Dates: start: 20050916

REACTIONS (2)
  - BRADYARRHYTHMIA [None]
  - HYPOTENSION [None]
